FAERS Safety Report 25650053 (Version 1)
Quarter: 2025Q3

REPORT INFORMATION
  Report Type: Other
  Country: US (occurrence: US)
  Receive Date: 20250806
  Receipt Date: 20250806
  Transmission Date: 20251021
  Serious: Yes (Life-Threatening, Hospitalization)
  Sender: ODIN PHARMACEUTICALS
  Company Number: USA--2025-US-000346

PATIENT
  Age: 8 Decade
  Sex: Male
  Weight: 82 kg

DRUGS (6)
  1. ROPIVACAINE HYDROCHLORIDE [Suspect]
     Active Substance: ROPIVACAINE HYDROCHLORIDE
     Indication: Analgesic therapy
  2. VALSARTAN [Concomitant]
     Active Substance: VALSARTAN
     Indication: Hypertension
     Route: 065
  3. ATENOLOL [Concomitant]
     Active Substance: ATENOLOL
     Indication: Hypertension
  4. FENTANYL [Concomitant]
     Active Substance: FENTANYL
     Indication: Pain
     Route: 065
  5. HYDROMORPHONE [Concomitant]
     Active Substance: HYDROMORPHONE
     Indication: Pain
     Route: 065
  6. OXYCODONE [Concomitant]
     Active Substance: OXYCODONE
     Indication: Pain
     Route: 065

REACTIONS (15)
  - Hyperkalaemia [Recovered/Resolved]
  - Liver injury [Unknown]
  - Renal failure [Unknown]
  - Respiratory failure [Unknown]
  - Acute kidney injury [Unknown]
  - Blood gases abnormal [Recovered/Resolved]
  - Respiratory acidosis [Unknown]
  - Metabolic acidosis [Unknown]
  - Hypoaesthesia oral [Recovered/Resolved]
  - Abdominal discomfort [Unknown]
  - Hypoaesthesia [Unknown]
  - Hypotension [Recovered/Resolved]
  - Mental status changes [Recovered/Resolved]
  - Somnolence [Unknown]
  - Chest pain [Unknown]
